FAERS Safety Report 19495942 (Version 1)
Quarter: 2021Q3

REPORT INFORMATION
  Report Type: Spontaneous
  Country: DE (occurrence: DE)
  Receive Date: 20210706
  Receipt Date: 20210706
  Transmission Date: 20211014
  Serious: Yes (Hospitalization)
  Sender: FDA-Public Use
  Company Number: DE-TEVA-2021-DE-1929442

PATIENT
  Age: 80 Year
  Sex: Female

DRUGS (6)
  1. RAMIPRIL. [Suspect]
     Active Substance: RAMIPRIL
     Dosage: 10 MILLIGRAM DAILY; 1?0?1?0
     Route: 048
  2. THYRONAJOD HENNING [Concomitant]
     Dosage: 75 MCG, MONDAY TO FRIDAY 1 TABLET
     Route: 048
  3. THYRONAJOD HENNING [Concomitant]
     Dosage: 100 MICROGRAM DAILY; 1?0?0?0
     Route: 048
  4. INDAPAMID HEUMANN 2,5MG [Suspect]
     Active Substance: INDAPAMIDE
     Dosage: 2.5 MILLIGRAM DAILY; 1?0?0?0
     Route: 048
  5. THYRONAJOD HENNING [Concomitant]
     Dosage: 100 MCG, SATURDAY AND SUNDAY 1 TABLET,
     Route: 048
  6. BISOPROLOL [Concomitant]
     Active Substance: BISOPROLOL
     Dosage: 5 MILLIGRAM DAILY; 10 MG, 0.5?0?0?0, 5 MG
     Route: 048

REACTIONS (4)
  - Nausea [Unknown]
  - Hyponatraemia [Unknown]
  - Muscular weakness [Unknown]
  - Weight decreased [Unknown]
